FAERS Safety Report 26153925 (Version 2)
Quarter: 2025Q4

REPORT INFORMATION
  Report Type: Report from Study
  Country: US (occurrence: US)
  Receive Date: 20251214
  Receipt Date: 20251222
  Transmission Date: 20260118
  Serious: Yes (Other)
  Sender: ABBVIE
  Company Number: US-ABBVIE-6585720

PATIENT
  Age: 19 Year
  Sex: Male

DRUGS (2)
  1. SKYRIZI [Suspect]
     Active Substance: RISANKIZUMAB-RZAA
     Indication: Crohn^s disease
     Dosage: FORM STRENGTH: 360 MILLIGRAM
     Route: 058
     Dates: start: 2025
  2. SKYRIZI [Suspect]
     Active Substance: RISANKIZUMAB-RZAA
     Indication: Crohn^s disease
     Dosage: UNKNOWN
     Route: 042
     Dates: start: 20250830, end: 2025

REACTIONS (10)
  - Loss of consciousness [Unknown]
  - Device issue [Not Recovered/Not Resolved]
  - Injection site urticaria [Unknown]
  - Injection site pain [Unknown]
  - Dizziness [Unknown]
  - Blood pressure abnormal [Unknown]
  - Loss of consciousness [Recovered/Resolved]
  - Injection site swelling [Not Recovered/Not Resolved]
  - Presyncope [Unknown]
  - Syncope [Unknown]

NARRATIVE: CASE EVENT DATE: 20250101
